FAERS Safety Report 8285717-3 (Version None)
Quarter: 2012Q2

REPORT INFORMATION
  Report Type: 
  Country: None (occurrence: None)
  Receive Date: 20120413
  Receipt Date: 20120410
  Transmission Date: 20120825
  Serious: Yes (Life-Threatening, Hospitalization)
  Sender: FDA-Public Use
  Company Number: US-TEVA-331281USA

PATIENT
  Sex: Female

DRUGS (24)
  1. TRIAZOLAM [Concomitant]
     Indication: INSOMNIA
     Dosage: AT BEDTIME
  2. IDARUBICIN HCL [Suspect]
     Indication: ACUTE MYELOID LEUKAEMIA
     Route: 042
     Dates: start: 20111212, end: 20120310
  3. ERGOCALCIFEROL [Concomitant]
     Dosage: 4000 IU (INTERNATIONAL UNIT);
  4. POTASSIUM [Concomitant]
     Dosage: 10 MILLIEQUIVALENTS;
  5. ALLOPURINOL [Concomitant]
     Dosage: 100 MILLIGRAM;
  6. LEVOFLOXACIN [Concomitant]
     Dosage: 500 MILLIGRAM; USING LEFT OVER PRESCRIPTION FOR PAST 3 DAYS
     Route: 048
  7. LORAZEPAM [Concomitant]
     Indication: ANXIETY
  8. VICODIN [Concomitant]
     Dosage: PRN (TAKEN INFREQUENTLY)
  9. ONDANSETRON [Concomitant]
     Route: 048
  10. TREANDA [Suspect]
     Indication: ACUTE MYELOID LEUKAEMIA
     Route: 042
     Dates: start: 20111212, end: 20120313
  11. CYCLOBENAZPRINE [Concomitant]
     Indication: MUSCLE SPASMS
     Dosage: BID PRN
  12. ALPRAZOLAM [Concomitant]
     Dosage: BID PRN
  13. GABAPENTIN [Concomitant]
     Dosage: 1800 MILLIGRAM;
  14. OXYBUTYNIN [Concomitant]
     Dosage: 15 MILLIGRAM;
  15. WARFARIN SODIUM [Concomitant]
  16. BUPROPION HCL [Concomitant]
     Dosage: 300 MILLIGRAM;
  17. CITALOPRAM HYDROBROMIDE [Concomitant]
     Dosage: 10 MILLIGRAM;
  18. LOMOTIL [Concomitant]
     Indication: DIARRHOEA
     Dosage: PRN
  19. LORAZEPAM [Concomitant]
     Indication: NAUSEA
     Dosage: Q4-6HRS PRN
  20. MULTI-VITAMIN [Concomitant]
  21. PROPRANOLOL [Concomitant]
     Dosage: 40 MILLIEQUIVALENTS;
  22. SENNA ALEXANDRINA [Concomitant]
     Indication: CONSTIPATION
     Dosage: DAILY
  23. TRETINOIN [Concomitant]
     Indication: SKIN WRINKLING
     Dosage: APPLY TO FACE
     Route: 061
  24. VENLAFAXINE [Concomitant]
     Dosage: 150 MILLIGRAM;

REACTIONS (2)
  - FEBRILE NEUTROPENIA [None]
  - CELLULITIS [None]
